FAERS Safety Report 8598136-7 (Version None)
Quarter: 2012Q3

REPORT INFORMATION
  Report Type: 
  Country: None (occurrence: None)
  Receive Date: 20120816
  Receipt Date: 20120808
  Transmission Date: 20120928
  Serious: Yes (Hospitalization)
  Sender: FDA-Public Use
  Company Number: US-BAYER-2011-075220

PATIENT
  Age: 25 Year
  Sex: Female
  Weight: 77.098 kg

DRUGS (5)
  1. YASMIN [Suspect]
     Dosage: UNK
     Dates: start: 20050101, end: 20050101
  2. CELEXA [Concomitant]
     Indication: POST-TRAUMATIC STRESS DISORDER
  3. CLONAZEPAM [Concomitant]
     Indication: POST-TRAUMATIC STRESS DISORDER
  4. CELEXA [Concomitant]
     Indication: DEPRESSION
     Dosage: UNK
     Dates: start: 20050101, end: 20120101
  5. CLONAZEPAM [Concomitant]
     Indication: DEPRESSION
     Dosage: UNK
     Dates: start: 20050101, end: 20120101

REACTIONS (3)
  - GALLBLADDER INJURY [None]
  - MENTAL DISORDER [None]
  - INJURY [None]
